FAERS Safety Report 5658255-1 (Version None)
Quarter: 2008Q1

REPORT INFORMATION
  Report Type: 
  Country: None (occurrence: None)
  Receive Date: 20080310
  Receipt Date: 20071015
  Transmission Date: 20080703
  Serious: No
  Sender: FDA-Public Use
  Company Number: US-BAYER-200710211BCC

PATIENT
  Age: 39 Year
  Sex: Female
  Weight: 86 kg

DRUGS (1)
  1. ALEVE [Suspect]
     Indication: NEUROPATHY PERIPHERAL
     Dosage: TOTAL DAILY DOSE: 440 MG  UNIT DOSE: 220 MG
     Route: 048
     Dates: start: 20061229, end: 20070113

REACTIONS (1)
  - RASH [None]
